FAERS Safety Report 18763489 (Version 1)
Quarter: 2021Q1

REPORT INFORMATION
  Report Type: Spontaneous
  Country: AT (occurrence: AT)
  Receive Date: 20210120
  Receipt Date: 20210120
  Transmission Date: 20210419
  Serious: Yes (Hospitalization)
  Sender: FDA-Public Use
  Company Number: NVSC2021AT010958

PATIENT
  Age: 71 Year
  Sex: Male

DRUGS (6)
  1. FENTANYL. [Concomitant]
     Active Substance: FENTANYL
     Indication: PRODUCT USED FOR UNKNOWN INDICATION
     Dosage: UNK (KALCEKS 50 UG/ML INJEKTIONSLOSUNG)
     Route: 065
  2. PROPOFOL. [Concomitant]
     Active Substance: PROPOFOL
     Indication: PRODUCT USED FOR UNKNOWN INDICATION
     Dosage: UNK (PFIZER) (EMULSION ZUR INJEKTION/INFUSION)
     Route: 065
  3. DICLOBENE [Concomitant]
     Active Substance: DICLOFENAC SODIUM
     Indication: PRODUCT USED FOR UNKNOWN INDICATION
     Dosage: UNK
     Route: 065
  4. ELO [Concomitant]
     Indication: PRODUCT USED FOR UNKNOWN INDICATION
     Dosage: UNK (MEL ISOTON INFUSIONSLOSUNG)
     Route: 065
  5. ESMERON [Concomitant]
     Active Substance: ROCURONIUM BROMIDE
     Indication: PRODUCT USED FOR UNKNOWN INDICATION
     Dosage: UNK (NJEKTIONSLOSUNG)
     Route: 065
  6. STANDACILLIN [Suspect]
     Active Substance: AMPICILLIN
     Indication: PRODUCT USED FOR UNKNOWN INDICATION
     Dosage: UNK
     Route: 042
     Dates: start: 20200901, end: 20200901

REACTIONS (5)
  - Bronchospasm [Unknown]
  - Erythema [Unknown]
  - Blood pressure decreased [Unknown]
  - Type I hypersensitivity [Unknown]
  - Shock [Unknown]

NARRATIVE: CASE EVENT DATE: 20200901
